FAERS Safety Report 21592150 (Version 2)
Quarter: 2022Q4

REPORT INFORMATION
  Report Type: Report from Study
  Country: CN (occurrence: CN)
  Receive Date: 20221114
  Receipt Date: 20221119
  Transmission Date: 20230113
  Serious: Yes (Hospitalization)
  Sender: FDA-Public Use
  Company Number: CN-002147023-NVSC2022CN252482

PATIENT
  Age: 57 Year
  Sex: Male
  Weight: 55.5 kg

DRUGS (1)
  1. COSENTYX [Suspect]
     Active Substance: SECUKINUMAB
     Indication: Psoriasis
     Dosage: 150 MG, QW (2 NEEDLES A WEEK)
     Route: 058
     Dates: start: 20220509, end: 202210

REACTIONS (9)
  - Pyrexia [Recovering/Resolving]
  - Hyperpyrexia [Recovering/Resolving]
  - Pulmonary tuberculosis [Recovering/Resolving]
  - Infectious pleural effusion [Recovering/Resolving]
  - Pneumonia [Recovering/Resolving]
  - Platelet count decreased [Recovering/Resolving]
  - Anaemia [Recovering/Resolving]
  - Cough [Recovering/Resolving]
  - Decreased immune responsiveness [Recovering/Resolving]

NARRATIVE: CASE EVENT DATE: 20220501
